FAERS Safety Report 7558351-8 (Version None)
Quarter: 2011Q2

REPORT INFORMATION
  Report Type: 
  Country: None (occurrence: None)
  Receive Date: 20110620
  Receipt Date: 20110610
  Transmission Date: 20111010
  Serious: Yes (Hospitalization)
  Sender: FDA-Public Use
  Company Number: PHHY2011ES41630

PATIENT
  Age: 27 Year
  Sex: Female

DRUGS (3)
  1. ISONIAZID [Suspect]
     Indication: ANTIBIOTIC PROPHYLAXIS
     Dosage: 300 MG, UNK
  2. PYRIDOXINE [Suspect]
     Indication: ANTIBIOTIC PROPHYLAXIS
     Dosage: 50 MG, UNK
  3. RIFAMPICIN [Suspect]
     Indication: ANTIBIOTIC PROPHYLAXIS
     Dosage: 600 MG, UNK

REACTIONS (17)
  - LYMPHADENOPATHY [None]
  - ENCEPHALOPATHY [None]
  - ALANINE AMINOTRANSFERASE INCREASED [None]
  - MALAISE [None]
  - THROMBOCYTOPENIA [None]
  - SUICIDAL IDEATION [None]
  - INFLAMMATORY MARKER INCREASED [None]
  - NEUTROPENIA [None]
  - DEPRESSION [None]
  - ASPARTATE AMINOTRANSFERASE INCREASED [None]
  - MONONUCLEOSIS SYNDROME [None]
  - PYREXIA [None]
  - ANXIETY [None]
  - BLOOD LACTATE DEHYDROGENASE INCREASED [None]
  - HEPATITIS [None]
  - PAIN [None]
  - LYMPHOCYTOSIS [None]
